FAERS Safety Report 15314785 (Version 1)
Quarter: 2018Q3

REPORT INFORMATION
  Report Type: Spontaneous
  Country: US (occurrence: US)
  Receive Date: 20180815
  Receipt Date: 20180815
  Transmission Date: 20181010
  Serious: Yes (Hospitalization)
  Sender: FDA-Public Use
  Company Number: None

PATIENT
  Sex: Male

DRUGS (13)
  1. KEPPRA [Concomitant]
     Active Substance: LEVETIRACETAM
  2. LOVENOX [Concomitant]
     Active Substance: ENOXAPARIN SODIUM
  3. NAMENDA [Concomitant]
     Active Substance: MEMANTINE HYDROCHLORIDE
  4. PEPCID [Concomitant]
     Active Substance: FAMOTIDINE
  5. VITAMIN D3 [Concomitant]
     Active Substance: CHOLECALCIFEROL
  6. TEMOZOLOMIDE. [Suspect]
     Active Substance: TEMOZOLOMIDE
     Indication: BRAIN NEOPLASM MALIGNANT
     Route: 048
     Dates: start: 20180412
  7. ONDANSETRON [Suspect]
     Active Substance: ONDANSETRON
     Indication: BRAIN NEOPLASM MALIGNANT
     Route: 048
     Dates: start: 20180717
  8. ZOLOFT [Concomitant]
     Active Substance: SERTRALINE HYDROCHLORIDE
  9. CALCIUM [Concomitant]
     Active Substance: CALCIUM
  10. MAGNESIUM [Concomitant]
     Active Substance: MAGNESIUM
  11. ATOVAQUONE. [Concomitant]
     Active Substance: ATOVAQUONE
  12. DEXAMETHASON [Concomitant]
     Active Substance: DEXAMETHASONE
  13. VITAMIN C [Concomitant]
     Active Substance: ASCORBIC ACID

REACTIONS (2)
  - Surgery [None]
  - Platelet count decreased [None]
